FAERS Safety Report 10176986 (Version 1)
Quarter: 2014Q2

REPORT INFORMATION
  Report Type: Spontaneous
  Country: IT (occurrence: IT)
  Receive Date: 20140516
  Receipt Date: 20140516
  Transmission Date: 20141212
  Serious: Yes (Hospitalization)
  Sender: FDA-Public Use
  Company Number: IT-ELI_LILLY_AND_COMPANY-IT201405001020

PATIENT
  Age: 82 Year
  Sex: Female

DRUGS (2)
  1. INSULIN HUMAN [Suspect]
     Indication: DIABETES MELLITUS
     Dosage: 1 DF, QD
     Route: 058
     Dates: start: 20130101, end: 20130425
  2. GLUCOBAY [Suspect]
     Indication: DIABETES MELLITUS
     Dosage: 1 DF, QD
     Route: 048
     Dates: start: 20130101, end: 20130425

REACTIONS (2)
  - Syncope [Unknown]
  - Head injury [Unknown]
